FAERS Safety Report 25406215 (Version 1)
Quarter: 2025Q2

REPORT INFORMATION
  Report Type: Report from Study
  Country: CA (occurrence: CA)
  Receive Date: 20250606
  Receipt Date: 20250606
  Transmission Date: 20250717
  Serious: Yes (Other)
  Sender: TAKEDA
  Company Number: CA-TAKEDA-2025TUS051222

PATIENT
  Sex: Male

DRUGS (16)
  1. VEDOLIZUMAB [Suspect]
     Active Substance: VEDOLIZUMAB
     Indication: Colitis ulcerative
  2. CARVEDILOL [Concomitant]
     Active Substance: CARVEDILOL
  3. FAMOTIDINE [Concomitant]
     Active Substance: FAMOTIDINE
  4. FLUTICASONE PROPIONATE [Concomitant]
     Active Substance: FLUTICASONE PROPIONATE
  5. FUROSEMIDE [Concomitant]
     Active Substance: FUROSEMIDE
  6. LANTUS [Concomitant]
     Active Substance: INSULIN GLARGINE
  7. METAMUCIL [Concomitant]
     Active Substance: PLANTAGO SEED
     Dosage: UNK UNK, BID
  8. METFORMIN [Concomitant]
     Active Substance: METFORMIN HYDROCHLORIDE
     Dosage: 500 MILLIGRAM, BID
  9. NITROGLYCERIN [Concomitant]
     Active Substance: NITROGLYCERIN
  10. RABEPRAZOLE [Concomitant]
     Active Substance: RABEPRAZOLE
  11. RAMIPRIL [Concomitant]
     Active Substance: RAMIPRIL
  12. RANITIDINE [Concomitant]
     Active Substance: RANITIDINE
  13. RIVAROXABAN [Concomitant]
     Active Substance: RIVAROXABAN
  14. ROSUVASTATIN [Concomitant]
     Active Substance: ROSUVASTATIN
  15. ALBUTEROL [Concomitant]
     Active Substance: ALBUTEROL
  16. NOVORAPID [Concomitant]
     Active Substance: INSULIN ASPART
     Dosage: 15 INTERNATIONAL UNIT, TID

REACTIONS (2)
  - Nephrolithiasis [Unknown]
  - Anal incontinence [Unknown]
